FAERS Safety Report 7035171-4 (Version None)
Quarter: 2010Q4

REPORT INFORMATION
  Report Type: 
  Country: None (occurrence: None)
  Receive Date: 20101008
  Receipt Date: 20100928
  Transmission Date: 20110411
  Serious: Yes (Other)
  Sender: FDA-Public Use
  Company Number: FR-BAYER-201041092GPV

PATIENT
  Age: 56 Year
  Sex: Male

DRUGS (9)
  1. GLUCOR (ACARBOSE) [Suspect]
     Dosage: TOTAL DAILY DOSE: 3 DF
     Route: 048
     Dates: end: 20090601
  2. KARDEGIC [Concomitant]
     Dosage: TOTAL DAILY DOSE: 1 DF
     Route: 048
  3. VALSARTAN  AND HYDROCHLOROTHIAZIDE [Concomitant]
     Dosage: TOTAL DAILY DOSE: 1 DF
     Route: 048
  4. ELISOR [Concomitant]
     Dosage: TOTAL DAILY DOSE: 1 DF
     Route: 048
  5. AMAREL [Concomitant]
     Dosage: TOTAL DAILY DOSE: 1 DF
     Route: 048
  6. TENORDATE [Concomitant]
     Dosage: AS USED: 1 DF
     Route: 048
  7. AVANDAMET [Concomitant]
     Dosage: TOTAL DAILY DOSE: 2 DF
     Route: 048
  8. OMEPRAZOLE [Concomitant]
     Dosage: AS USED: 1 DF
     Route: 048
  9. ZYLORIC [Concomitant]
     Dosage: TOTAL DAILY DOSE: 1 DF
     Route: 048

REACTIONS (1)
  - PNEUMATOSIS INTESTINALIS [None]
